FAERS Safety Report 10252682 (Version 1)
Quarter: 2014Q2

REPORT INFORMATION
  Report Type: Spontaneous
  Country: US (occurrence: None)
  Receive Date: 20140620
  Receipt Date: 20140620
  Transmission Date: 20141212
  Serious: Yes (Other)
  Sender: FDA-Public Use
  Company Number: None

PATIENT
  Age: 53 Year
  Sex: Male
  Weight: 71 kg

DRUGS (9)
  1. WARFARIN [Suspect]
     Indication: DEEP VEIN THROMBOSIS
     Route: 048
     Dates: start: 20140427, end: 20140430
  2. WARFARIN [Suspect]
     Indication: PULMONARY EMBOLISM
     Route: 048
     Dates: start: 20140427, end: 20140430
  3. ENOXAPARIN [Suspect]
     Indication: DEEP VEIN THROMBOSIS
     Route: 058
     Dates: start: 20140427, end: 20140430
  4. ENOXAPARIN [Suspect]
     Indication: PULMONARY EMBOLISM
     Route: 058
     Dates: start: 20140427, end: 20140430
  5. OMEPRAZOLE [Concomitant]
  6. CLONAZEPAM [Concomitant]
  7. DOXEPIN [Concomitant]
  8. PROAIR HFA [Concomitant]
  9. DOCUSATE SODIUM [Concomitant]

REACTIONS (2)
  - Toxicity to various agents [None]
  - Hypoaesthesia [None]
